FAERS Safety Report 7441411-X (Version None)
Quarter: 2011Q2

REPORT INFORMATION
  Report Type: 
  Country: None (occurrence: None)
  Receive Date: 20110408
  Receipt Date: 20110331
  Transmission Date: 20111010
  Serious: Yes (Hospitalization)
  Sender: FDA-Public Use
  Company Number: US-145171

PATIENT
  Sex: Male

DRUGS (13)
  1. XALATAN [Concomitant]
  2. FLOMAX [Concomitant]
  3. FISH OIL [Concomitant]
  4. ATARAX [Concomitant]
  5. DERMAREST [Concomitant]
  6. AVODART [Concomitant]
  7. DEXAMETHASONE [Concomitant]
  8. PRAVASTATIN [Concomitant]
  9. VITAMIN B COMPLEX CAP [Concomitant]
  10. ECZEMA [Concomitant]
  11. VITAMIN D [Concomitant]
  12. WINRHO SDF LIQUID [Suspect]
     Indication: THROMBOCYTOPENIA
     Dosage: (INTRAVENOUS (NOT OTHERWISE SPECIFIED))
     Route: 042
     Dates: start: 20110111, end: 20110111
  13. MULTI-VITAMINS [Concomitant]

REACTIONS (5)
  - HAEMOLYTIC ANAEMIA [None]
  - HEADACHE [None]
  - JAUNDICE [None]
  - FATIGUE [None]
  - BACK PAIN [None]
